FAERS Safety Report 17541447 (Version 1)
Quarter: 2020Q1

REPORT INFORMATION
  Report Type: Spontaneous
  Country: US (occurrence: US)
  Receive Date: 20200313
  Receipt Date: 20200313
  Transmission Date: 20200409
  Serious: Yes (Hospitalization, Other)
  Sender: FDA-Public Use
  Company Number: US-ASTRAZENECA-2020SE35960

PATIENT
  Age: 469 Day
  Sex: Female
  Weight: 7.8 kg

DRUGS (4)
  1. SYNAGIS [Suspect]
     Active Substance: PALIVIZUMAB
     Dosage: 50MG/0.5ML VL LIQUID 50 MG MONTHLY
     Route: 030
     Dates: start: 20191202
  2. EPINEPHRINE HCL [Concomitant]
     Active Substance: EPINEPHRINE
  3. AMOXICILLIN. [Concomitant]
     Active Substance: AMOXICILLIN
  4. TAMIFLU [Concomitant]
     Active Substance: OSELTAMIVIR PHOSPHATE

REACTIONS (4)
  - Pyrexia [Unknown]
  - Ear infection [Unknown]
  - Seizure [Unknown]
  - Influenza [Unknown]

NARRATIVE: CASE EVENT DATE: 20200119
